FAERS Safety Report 23250596 (Version 1)
Quarter: 2023Q4

REPORT INFORMATION
  Report Type: Spontaneous
  Country: HK (occurrence: HK)
  Receive Date: 20231201
  Receipt Date: 20231201
  Transmission Date: 20240109
  Serious: Yes (Other)
  Sender: FDA-Public Use
  Company Number: HK-AMGEN-HKGSP2023211172

PATIENT

DRUGS (2)
  1. LUMAKRAS [Suspect]
     Active Substance: SOTORASIB
     Indication: Product used for unknown indication
     Dosage: 960 MILLIGRAM, QD
     Route: 065
  2. LUMAKRAS [Suspect]
     Active Substance: SOTORASIB
     Dosage: (REDUCING DOSE FROM ONCE TO TWICE DAILY) BID
     Route: 065

REACTIONS (2)
  - Lung neoplasm malignant [Unknown]
  - Abdominal discomfort [Recovered/Resolved]
